FAERS Safety Report 5816200-X (Version None)
Quarter: 2008Q3

REPORT INFORMATION
  Report Type: 
  Country: None (occurrence: None)
  Receive Date: 20080721
  Receipt Date: 20080714
  Transmission Date: 20090109
  Serious: Yes (Hospitalization)
  Sender: FDA-Public Use
  Company Number: B0525893A

PATIENT
  Age: 72 Year
  Sex: Female
  Weight: 38 kg

DRUGS (5)
  1. ULTIVA [Suspect]
     Indication: HEAD AND NECK CANCER
     Route: 042
     Dates: start: 20080617, end: 20080617
  2. PROPOFOL [Suspect]
     Indication: HEAD AND NECK CANCER
     Dosage: 80MG PER DAY
     Route: 042
     Dates: start: 20080617, end: 20080617
  3. ROCURONIUM BROMIDE [Suspect]
     Indication: HEAD AND NECK CANCER
     Dosage: 30MG PER DAY
     Route: 042
     Dates: start: 20080617, end: 20080617
  4. SEVOFLURANE [Suspect]
     Indication: DRUG USE FOR UNKNOWN INDICATION
     Route: 055
  5. RASENAZOLIN [Suspect]
     Indication: HEAD AND NECK CANCER
     Dosage: 1G PER DAY
     Route: 042
     Dates: start: 20080617, end: 20080617

REACTIONS (1)
  - ANAPHYLACTIC REACTION [None]
